FAERS Safety Report 21540567 (Version 3)
Quarter: 2022Q4

REPORT INFORMATION
  Report Type: Report from Study
  Country: CL (occurrence: CL)
  Receive Date: 20221102
  Receipt Date: 20221111
  Transmission Date: 20230112
  Serious: Yes (Hospitalization, Other)
  Sender: FDA-Public Use
  Company Number: CL-002147023-NVSC2022CL223743

PATIENT
  Age: 21 Year
  Sex: Female

DRUGS (29)
  1. TRAMETINIB [Suspect]
     Active Substance: TRAMETINIB
     Indication: Colorectal cancer metastatic
     Dosage: 1.5 MG
     Route: 048
     Dates: start: 20220831, end: 20220928
  2. IPILIMUMAB [Suspect]
     Active Substance: IPILIMUMAB
     Indication: Colorectal cancer metastatic
     Dosage: 62 MG
     Route: 042
     Dates: start: 20220831, end: 20220831
  3. NIVOLUMAB [Suspect]
     Active Substance: NIVOLUMAB
     Indication: Colorectal cancer metastatic
     Dosage: 372 MG
     Route: 042
     Dates: start: 20220831, end: 20220831
  4. OMEPRAZOLE [Concomitant]
     Active Substance: OMEPRAZOLE
     Indication: Product used for unknown indication
     Dosage: UNK
     Route: 048
     Dates: start: 202109
  5. BUPRENORPHINE [Concomitant]
     Active Substance: BUPRENORPHINE
     Indication: Product used for unknown indication
     Dosage: 0.5 MG
     Route: 062
     Dates: start: 202109
  6. METOCLOPRAMIDE [Concomitant]
     Active Substance: METOCLOPRAMIDE
     Indication: Product used for unknown indication
     Dosage: 10 MG
     Route: 048
     Dates: start: 202109
  7. METOCLOPRAMIDE [Concomitant]
     Active Substance: METOCLOPRAMIDE
     Dosage: 30 MG
     Route: 048
     Dates: start: 20220914
  8. TRAMADOL [Concomitant]
     Active Substance: TRAMADOL
     Indication: Product used for unknown indication
     Dosage: UNK
     Route: 048
     Dates: start: 2021
  9. KETOROLAC [Concomitant]
     Active Substance: KETOROLAC TROMETHAMINE
     Indication: Product used for unknown indication
     Dosage: 10 MG
     Route: 048
     Dates: start: 202109
  10. LEVOTHYROXINE SODIUM [Concomitant]
     Active Substance: LEVOTHYROXINE SODIUM
     Indication: Product used for unknown indication
     Dosage: 50 UG
     Route: 048
     Dates: start: 20220831
  11. FEXOFENADINE [Concomitant]
     Active Substance: FEXOFENADINE HYDROCHLORIDE
     Indication: Product used for unknown indication
     Dosage: 120 MG
     Route: 048
     Dates: start: 20220914
  12. CHLORPHENIRAMINE MALEATE [Concomitant]
     Active Substance: CHLORPHENIRAMINE MALEATE
     Indication: Product used for unknown indication
     Dosage: 4 MG
     Route: 048
     Dates: start: 20220914
  13. DOXYCYCLINE [Concomitant]
     Active Substance: DOXYCYCLINE
     Indication: Rash
     Dosage: 100 MG
     Route: 048
     Dates: start: 20220914
  14. CLOBETASOL [Concomitant]
     Active Substance: CLOBETASOL
     Indication: Rash
     Dosage: UNK
     Route: 061
     Dates: start: 20220914
  15. ONDANSETRON [Concomitant]
     Active Substance: ONDANSETRON
     Indication: Cyclic vomiting syndrome
     Dosage: 8 MG
     Route: 042
     Dates: start: 20220911
  16. ONDANSETRON [Concomitant]
     Active Substance: ONDANSETRON
     Dosage: 8 MG
     Route: 048
     Dates: start: 20220914
  17. ONDANSETRON [Concomitant]
     Active Substance: ONDANSETRON
     Dosage: 8 MG
     Route: 042
     Dates: start: 20220928, end: 20220928
  18. ONDANSETRON [Concomitant]
     Active Substance: ONDANSETRON
     Dosage: 8 MG
     Route: 042
     Dates: start: 20221005, end: 20221005
  19. AMLODIPINE [Concomitant]
     Active Substance: AMLODIPINE BESYLATE
     Indication: Hypertension
     Dosage: 5 MG
     Route: 048
     Dates: start: 20220914
  20. AMLODIPINE [Concomitant]
     Active Substance: AMLODIPINE BESYLATE
     Dosage: 2.5 MG
     Route: 048
     Dates: start: 20220929, end: 20221012
  21. ACETAMINOPHEN [Concomitant]
     Active Substance: ACETAMINOPHEN
     Indication: Headache
     Dosage: 1 MG
     Route: 048
     Dates: start: 20220914
  22. FERROUS FUMARATE [Concomitant]
     Active Substance: FERROUS FUMARATE
     Indication: Headache
     Dosage: 1 DOSAGE FORM
     Route: 048
     Dates: start: 20220914
  23. METRONIDAZOLE [Concomitant]
     Active Substance: METRONIDAZOLE
     Indication: Rash
     Dosage: 1 DOSAGE FORM
     Route: 048
     Dates: start: 20220914
  24. CALCIUM CHLORIDE [Concomitant]
     Active Substance: CALCIUM CHLORIDE
     Indication: Cyclic vomiting syndrome
     Dosage: 1 DOSAGE FORM
     Route: 042
     Dates: start: 20220928, end: 20220928
  25. SODIUM LACTATE [Concomitant]
     Active Substance: SODIUM LACTATE
     Indication: Cyclic vomiting syndrome
     Dosage: 1 DOSAGE FORM
     Route: 042
     Dates: start: 20220928, end: 20220928
  26. SODIUM CHLORIDE [Concomitant]
     Active Substance: SODIUM CHLORIDE
     Indication: Cyclic vomiting syndrome
     Dosage: UNK
     Route: 042
     Dates: start: 20220928, end: 20220928
  27. SODIUM CHLORIDE [Concomitant]
     Active Substance: SODIUM CHLORIDE
     Dosage: 1 DOSAGE FORM
     Route: 042
     Dates: start: 20221005, end: 20221005
  28. POTASSIUM CHLORIDE [Concomitant]
     Active Substance: POTASSIUM CHLORIDE
     Indication: Cyclic vomiting syndrome
     Dosage: 1 DOSAGE FORM
     Route: 042
     Dates: start: 20220928, end: 20220928
  29. LOSARTAN POTASSIUM [Concomitant]
     Active Substance: LOSARTAN POTASSIUM
     Indication: Hypertension
     Dosage: 100 MG
     Route: 048
     Dates: start: 20220928

REACTIONS (2)
  - Cardiac failure congestive [Recovered/Resolved]
  - Ejection fraction decreased [Recovered/Resolved]

NARRATIVE: CASE EVENT DATE: 20220927
